FAERS Safety Report 4492374-0 (Version None)
Quarter: 2004Q4

REPORT INFORMATION
  Report Type: 
  Country: None (occurrence: None)
  Receive Date: 20041029
  Receipt Date: 20041019
  Transmission Date: 20050328
  Serious: Yes (Other)
  Sender: FDA-Public Use
  Company Number: 2004225951US

PATIENT
  Age: 72 Year
  Sex: Female
  Weight: 83.9 kg

DRUGS (6)
  1. BEXTRA [Suspect]
     Indication: PAIN
     Dosage: 10 MG, QD
     Dates: start: 20040126, end: 20040715
  2. HYDROCHLOROTHIAZIDE [Suspect]
     Dates: start: 20040101, end: 20040715
  3. PANTOPRAZOLE [Concomitant]
  4. SYNTHROID [Concomitant]
  5. DILTIAZEM [Concomitant]
  6. ADVIR [Concomitant]

REACTIONS (12)
  - DIFFICULTY IN WALKING [None]
  - DISEASE RECURRENCE [None]
  - FEELING ABNORMAL [None]
  - HISTONE ANTIBODY POSITIVE [None]
  - LUPUS-LIKE SYNDROME [None]
  - MUSCLE SPASMS [None]
  - MUSCULOSKELETAL STIFFNESS [None]
  - OEDEMA PERIPHERAL [None]
  - PAIN [None]
  - PARAESTHESIA [None]
  - PNEUMONIA [None]
  - STREPTOCOCCAL INFECTION [None]
